FAERS Safety Report 5714756-9 (Version None)
Quarter: 2008Q2

REPORT INFORMATION
  Report Type: 
  Country: None (occurrence: None)
  Receive Date: 20080423
  Receipt Date: 20060410
  Transmission Date: 20081010
  Serious: Yes (Death)
  Sender: FDA-Public Use
  Company Number: DE-ROCHE-443587

PATIENT
  Sex: Female
  Weight: 61.3 kg

DRUGS (2)
  1. CAPECITABINE [Suspect]
     Dosage: TWO WEEKS TREATMENT FOLLOWED BY ONE WEEK REST.
     Route: 048
     Dates: start: 20060330, end: 20060407
  2. CISPLATIN [Suspect]
     Route: 042
     Dates: start: 20060330

REACTIONS (1)
  - DEATH [None]
